FAERS Safety Report 7400302-0 (Version None)
Quarter: 2011Q2

REPORT INFORMATION
  Report Type: 
  Country: None (occurrence: None)
  Receive Date: 20110407
  Receipt Date: 20110401
  Transmission Date: 20111010
  Serious: Yes (Hospitalization)
  Sender: FDA-Public Use
  Company Number: IT-B.I. PHARMACEUTICALS,INC./RIDGEFIELD-2011-IT-00089IT

PATIENT
  Sex: Male

DRUGS (4)
  1. MICARDIS [Suspect]
     Indication: ESSENTIAL HYPERTENSION
     Dosage: 80 MG
     Route: 048
     Dates: start: 20101213, end: 20110207
  2. COUMADIN [Concomitant]
  3. EUTIROX [Concomitant]
  4. SINEMET [Concomitant]

REACTIONS (1)
  - PRESYNCOPE [None]
